FAERS Safety Report 5077578-0 (Version None)
Quarter: 2006Q3

REPORT INFORMATION
  Report Type: 
  Country: None (occurrence: None)
  Receive Date: 20060810
  Receipt Date: 20060411
  Transmission Date: 20061208
  Serious: No
  Sender: FDA-Public Use
  Company Number: US-GLAXOSMITHKLINE-A0601396A

PATIENT
  Age: 62 Year
  Sex: Female

DRUGS (4)
  1. PAROXETINE HCL [Suspect]
     Indication: DEPRESSION
     Dosage: 10MG PER DAY
     Route: 048
     Dates: end: 20060331
  2. TOPROL-XL [Concomitant]
  3. ACCUPRIL [Concomitant]
  4. ACETAMINOPHEN [Concomitant]

REACTIONS (12)
  - ABNORMAL DREAMS [None]
  - CRYING [None]
  - DIZZINESS [None]
  - FATIGUE [None]
  - FEAR [None]
  - HEADACHE [None]
  - HYPERTENSION [None]
  - INSOMNIA [None]
  - NAUSEA [None]
  - NERVOUSNESS [None]
  - SCREAMING [None]
  - SOCIAL AVOIDANT BEHAVIOUR [None]
